APPROVED DRUG PRODUCT: DEXTROSE 5% AND ELECTROLYTE NO. 75 IN PLASTIC CONTAINER
Active Ingredient: DEXTROSE; POTASSIUM CHLORIDE; POTASSIUM PHOSPHATE, MONOBASIC; SODIUM CHLORIDE; SODIUM LACTATE
Strength: 5GM/100ML;205MG/100ML;100MG/100ML;120MG/100ML;220MG/100ML
Dosage Form/Route: INJECTABLE;INJECTION
Application: N018840 | Product #001
Applicant: BAXTER HEALTHCARE CORP
Approved: Jun 29, 1983 | RLD: No | RS: No | Type: DISCN